FAERS Safety Report 23916032 (Version 1)
Quarter: 2024Q2

REPORT INFORMATION
  Report Type: Spontaneous
  Country: US (occurrence: None)
  Receive Date: 20240528
  Receipt Date: 20240528
  Transmission Date: 20240716
  Serious: Yes (Other)
  Sender: FDA-Public Use
  Company Number: None

PATIENT
  Age: 48 Year
  Sex: Male
  Weight: 65 kg

DRUGS (4)
  1. CABENUVA [Suspect]
     Active Substance: CABOTEGRAVIR\RILPIVIRINE
     Indication: Acquired immunodeficiency syndrome
     Dosage: OTHER FREQUENCY : EVERY 8 WEEKS;?
     Route: 030
     Dates: start: 20221117
  2. BOTULINUM TOXIN TYPE A [Concomitant]
     Active Substance: BOTULINUM TOXIN TYPE A
  3. oxyCODONE-acetaminophen [Concomitant]
  4. LEVETIRACETAM [Concomitant]

REACTIONS (5)
  - Dyspnoea [None]
  - Hypoaesthesia [None]
  - Taste disorder [None]
  - Blood pressure increased [None]
  - Refusal of treatment by patient [None]

NARRATIVE: CASE EVENT DATE: 20240520
